FAERS Safety Report 24822679 (Version 1)
Quarter: 2025Q1

REPORT INFORMATION
  Report Type: Spontaneous
  Country: GB (occurrence: GB)
  Receive Date: 20250109
  Receipt Date: 20250109
  Transmission Date: 20250409
  Serious: No
  Sender: ALKEM
  Company Number: GB-ALKEM LABORATORIES LIMITED-GB-ALKEM-2024-15688

PATIENT
  Sex: Female

DRUGS (1)
  1. SILDENAFIL [Suspect]
     Active Substance: SILDENAFIL
     Indication: Foetal growth restriction
     Dosage: 25 MILLIGRAM, TID (2 HOUR AFTER RECEIVING THE FIRST DOSE) (AT 3-4DAYS AFTER THE FIRST DOSE) (WEEKLY
     Route: 048

REACTIONS (1)
  - Exposure during pregnancy [Unknown]
